FAERS Safety Report 5213236-7 (Version None)
Quarter: 2007Q1

REPORT INFORMATION
  Report Type: 
  Country: None (occurrence: None)
  Receive Date: 20070119
  Receipt Date: 20070107
  Transmission Date: 20070707
  Serious: Yes (Hospitalization, Other)
  Sender: FDA-Public Use
  Company Number: CA-NOVOPROD-258386

PATIENT
  Age: 72 Year
  Sex: Male
  Weight: 64 kg

DRUGS (4)
  1. NIASTASE [Suspect]
     Indication: HAEMORRHAGE
     Dosage: 3.6 MG, SINGLE
     Route: 042
     Dates: start: 20060506
  2. BLOOD CELLS, PACKED HUMAN [Concomitant]
  3. FRESH FROZEN PLASMA [Concomitant]
  4. PLATELETS [Concomitant]

REACTIONS (2)
  - CARDIAC TAMPONADE [None]
  - CATHETER RELATED COMPLICATION [None]
